FAERS Safety Report 6681199-3 (Version None)
Quarter: 2010Q2

REPORT INFORMATION
  Report Type: 
  Country: None (occurrence: None)
  Receive Date: 20100414
  Receipt Date: 20090401
  Transmission Date: 20101027
  Serious: No
  Sender: FDA-Public Use
  Company Number: US-KINGPHARMUSA00001-K200900374

PATIENT
  Sex: Male
  Weight: 111.11 kg

DRUGS (2)
  1. SKELAXIN [Suspect]
     Indication: BACK PAIN
     Dosage: 800 MG, TID, PRN
     Route: 048
     Dates: start: 20070101, end: 20090301
  2. SKELAXIN [Suspect]
     Dosage: 800 MG, TID
     Route: 048
     Dates: start: 20090301, end: 20090316

REACTIONS (2)
  - BLISTER [None]
  - URTICARIA [None]
